FAERS Safety Report 14273654 (Version 2)
Quarter: 2017Q4

REPORT INFORMATION
  Report Type: Report from Study
  Country: None (occurrence: DE)
  Receive Date: 20171212
  Receipt Date: 20171212
  Transmission Date: 20180321
  Serious: No
  Sender: FDA-Public Use
  Company Number: DE-ABBVIE-17K-062-2189593-00

PATIENT
  Age: 29 Year
  Sex: Female
  Weight: 72 kg

DRUGS (1)
  1. HUMIRA [Suspect]
     Active Substance: ADALIMUMAB
     Indication: PSORIASIS
     Route: 058
     Dates: start: 20170921

REACTIONS (2)
  - Skin erosion [Unknown]
  - Post procedural complication [Unknown]

NARRATIVE: CASE EVENT DATE: 201712
